FAERS Safety Report 14676419 (Version 6)
Quarter: 2018Q2

REPORT INFORMATION
  Report Type: Report from Study
  Country: CA (occurrence: CA)
  Receive Date: 20180323
  Receipt Date: 20180413
  Transmission Date: 20180711
  Serious: Yes (Hospitalization)
  Sender: FDA-Public Use
  Company Number: CA-HLSUS-2018-CA-000251

PATIENT
  Age: 53 Year
  Sex: Female
  Weight: 106 kg

DRUGS (1)
  1. CLOZARIL [Suspect]
     Active Substance: CLOZAPINE
     Indication: SCHIZOPHRENIA
     Route: 048
     Dates: start: 20060118, end: 201803

REACTIONS (9)
  - Breast cancer [Unknown]
  - Hepatic cirrhosis [Unknown]
  - Leukopenia [Unknown]
  - Ascites [Unknown]
  - Hepatic encephalopathy [Unknown]
  - Pancytopenia [Unknown]
  - Thrombocytopenia [Unknown]
  - Cerebrovascular accident [Unknown]
  - Neutropenia [Unknown]

NARRATIVE: CASE EVENT DATE: 2010
